FAERS Safety Report 6402917-5 (Version None)
Quarter: 2009Q4

REPORT INFORMATION
  Report Type: 
  Country: None (occurrence: None)
  Receive Date: 20091014
  Receipt Date: 20091014
  Transmission Date: 20100525
  Serious: Yes (Other)
  Sender: FDA-Public Use
  Company Number: None

PATIENT
  Sex: Female
  Weight: 2.9 kg

DRUGS (4)
  1. GENTAMICIN [Suspect]
     Indication: INFECTION PROPHYLAXIS
     Dosage: 3.5G ONCE PO
     Route: 048
     Dates: start: 20091003, end: 20091003
  2. GENTAMICIN [Suspect]
  3. HEPATITIS B VACCINE [Concomitant]
  4. PHYTONADIONE [Concomitant]

REACTIONS (4)
  - CONJUNCTIVITIS [None]
  - EYE IRRITATION [None]
  - FEELING ABNORMAL [None]
  - OCULAR HYPERAEMIA [None]
